FAERS Safety Report 19289404 (Version 3)
Quarter: 2021Q3

REPORT INFORMATION
  Report Type: Spontaneous
  Country: US (occurrence: US)
  Receive Date: 20210521
  Receipt Date: 20210805
  Transmission Date: 20211014
  Serious: No
  Sender: FDA-Public Use
  Company Number: US-PFIZER INC-2021475856

PATIENT
  Age: 63 Year
  Sex: Female

DRUGS (1)
  1. IBRANCE [Suspect]
     Active Substance: PALBOCICLIB
     Indication: NEURALGIA
     Dosage: UNK

REACTIONS (4)
  - Dysphagia [Unknown]
  - Malaise [Unknown]
  - Food poisoning [Unknown]
  - Arthritis [Unknown]
